FAERS Safety Report 24097066 (Version 1)
Quarter: 2024Q3

REPORT INFORMATION
  Report Type: Spontaneous
  Country: US (occurrence: US)
  Receive Date: 20240716
  Receipt Date: 20240716
  Transmission Date: 20241017
  Serious: No
  Sender: GRIFOLS
  Company Number: US-IGSA-BIG0029310

PATIENT
  Sex: Female

DRUGS (30)
  1. GAMUNEX-C [Suspect]
     Active Substance: HUMAN IMMUNOGLOBULIN G
     Indication: Immunodeficiency common variable
     Dosage: 10 GRAM, Q.WK.
     Route: 058
  2. ATORVASTATIN [Concomitant]
     Active Substance: ATORVASTATIN
  3. BACLOFEN [Concomitant]
     Active Substance: BACLOFEN
  4. BENZTROPINE [Concomitant]
     Active Substance: BENZTROPINE
     Dosage: 2 MILLIGRAM
  5. BIOTIN [Concomitant]
     Active Substance: BIOTIN
  6. BUSPIRONE [Concomitant]
     Active Substance: BUSPIRONE HYDROCHLORIDE
  7. ASCORBIC ACID\CRANBERRY [Concomitant]
     Active Substance: ASCORBIC ACID\CRANBERRY
  8. DIFLUCAN [Concomitant]
     Active Substance: FLUCONAZOLE
     Dosage: 200 MILLIGRAM
  9. GABAPENTIN [Concomitant]
     Active Substance: GABAPENTIN
  10. HYDROXYZINE [Concomitant]
     Active Substance: HYDROXYZINE HYDROCHLORIDE
     Dosage: 30 MILLIGRAM
  11. IBUPROFEN [Concomitant]
     Active Substance: IBUPROFEN
  12. IRON [Concomitant]
     Active Substance: IRON
     Dosage: 85 MILLIGRAM
  13. KLONOPIN [Concomitant]
     Active Substance: CLONAZEPAM
     Dosage: 0.5 MICROGRAM
  14. LAMICTAL [Concomitant]
     Active Substance: LAMOTRIGINE
     Dosage: 200 MILLIGRAM
  15. METFORMIN [Concomitant]
     Active Substance: METFORMIN HYDROCHLORIDE
  16. MUCINEX [Concomitant]
     Active Substance: GUAIFENESIN
     Dosage: 600 MILLIGRAM
  17. ONDANSETRON [Concomitant]
     Active Substance: ONDANSETRON
     Dosage: 800 MILLIGRAM
  18. PEPCID [Concomitant]
     Active Substance: FAMOTIDINE
     Dosage: 40 MILLIGRAM
  19. POTASSIUM [Concomitant]
     Active Substance: POTASSIUM
     Dosage: 20 MILLIEQUIVALENT
  20. PRAZOSIN [Concomitant]
     Active Substance: PRAZOSIN
  21. PROPRANOLOL [Concomitant]
     Active Substance: PROPRANOLOL HYDROCHLORIDE
  22. SAPHRIS [Concomitant]
     Active Substance: ASENAPINE MALEATE
     Dosage: 10 MILLIGRAM
  23. SEROQUEL [Concomitant]
     Active Substance: QUETIAPINE FUMARATE
     Dosage: 400 MILLIGRAM
  24. STOOL SOFTENER (DOCUSATE) [Concomitant]
     Active Substance: DOCUSATE
     Dosage: 500 MILLIGRAM
  25. TRULICITY [Concomitant]
     Active Substance: DULAGLUTIDE
  26. TYLENOL [Concomitant]
     Active Substance: ACETAMINOPHEN
     Dosage: 325 MILLIGRAM
  27. VITAMIN C [Concomitant]
     Active Substance: ASCORBIC ACID
     Dosage: 1000 MILLIGRAM
  28. VITAMIN D3 [Concomitant]
     Active Substance: CHOLECALCIFEROL
  29. ZINC [Concomitant]
     Active Substance: ZINC
     Dosage: 100 MILLIGRAM
  30. ZYPREXA [Concomitant]
     Active Substance: OLANZAPINE
     Dosage: 20 MILLIGRAM

REACTIONS (1)
  - Pruritus [Recovered/Resolved]
